FAERS Safety Report 25845300 (Version 2)
Quarter: 2025Q4

REPORT INFORMATION
  Report Type: Report from Study
  Country: EU (occurrence: EU)
  Receive Date: 20250925
  Receipt Date: 20251007
  Transmission Date: 20260118
  Serious: Yes (Other)
  Sender: ABBVIE
  Company Number: EU-ABBVIE-6471906

PATIENT
  Age: 25 Year
  Sex: Male

DRUGS (1)
  1. RINVOQ [Suspect]
     Active Substance: UPADACITINIB
     Indication: Crohn^s disease
     Route: 048
     Dates: start: 20240214

REACTIONS (4)
  - Procedural pancreatitis [Unknown]
  - Depression [Not Recovered/Not Resolved]
  - Malaise [Recovering/Resolving]
  - Anger [Not Recovered/Not Resolved]

NARRATIVE: CASE EVENT DATE: 20250101
